FAERS Safety Report 7229988-0 (Version None)
Quarter: 2011Q1

REPORT INFORMATION
  Report Type: 
  Country: None (occurrence: None)
  Receive Date: 20110117
  Receipt Date: 20110113
  Transmission Date: 20110831
  Serious: Yes (Hospitalization)
  Sender: FDA-Public Use
  Company Number: ES-GILEAD-E2B_00001038

PATIENT
  Age: 47 Year
  Sex: Male

DRUGS (4)
  1. SEPTRIN [Suspect]
     Route: 048
     Dates: start: 20090327
  2. KALETRA [Suspect]
     Indication: HIV INFECTION
     Route: 048
     Dates: start: 20090305
  3. TRUVADA [Suspect]
     Indication: HIV INFECTION
     Route: 048
     Dates: start: 20090305
  4. ALPRAZOLAM [Suspect]
     Indication: ANXIETY
     Route: 048
     Dates: start: 20090113

REACTIONS (1)
  - NEPHROTIC SYNDROME [None]
